FAERS Safety Report 7461562-3 (Version None)
Quarter: 2011Q2

REPORT INFORMATION
  Report Type: 
  Country: None (occurrence: None)
  Receive Date: 20110428
  Receipt Date: 20110412
  Transmission Date: 20111010
  Serious: Yes (Death, Other)
  Sender: FDA-Public Use
  Company Number: OPIR20100034

PATIENT
  Age: 19 Year
  Sex: Male
  Weight: 78.4723 kg

DRUGS (5)
  1. CYMBALTA [Suspect]
     Indication: PRODUCT USED FOR UNKNOWN INDICATION
     Dosage: ORAL
     Route: 048
  2. SEROQUEL [Suspect]
     Indication: ANXIETY
     Dosage: 3 PILLS, DAILY, ORAL
     Route: 048
     Dates: start: 20100106
  3. OPANA [Suspect]
     Indication: DRUG ABUSE
     Dosage: ORAL
     Route: 048
  4. MARIJUANA (CANNABIS SATIVA) [Suspect]
     Indication: DRUG ABUSE
  5. CLONAZEPAM [Suspect]
     Indication: PRODUCT USED FOR UNKNOWN INDICATION
     Dosage: ORAL
     Route: 048

REACTIONS (15)
  - SELF-MEDICATION [None]
  - PULMONARY OEDEMA [None]
  - BLOOD SODIUM INCREASED [None]
  - DRUG DIVERSION [None]
  - MULTIPLE DRUG OVERDOSE [None]
  - ACCIDENTAL DEATH [None]
  - BLOOD CALCIUM DECREASED [None]
  - CARBON DIOXIDE DECREASED [None]
  - ASPARTATE AMINOTRANSFERASE INCREASED [None]
  - LOSS OF CONSCIOUSNESS [None]
  - BLOOD GLUCOSE DECREASED [None]
  - SPLENOMEGALY [None]
  - DRUG ABUSE [None]
  - BLOOD POTASSIUM INCREASED [None]
  - BLOOD CHLORIDE INCREASED [None]
